FAERS Safety Report 15016020 (Version 4)
Quarter: 2018Q3

REPORT INFORMATION
  Report Type: Spontaneous
  Country: TH (occurrence: TH)
  Receive Date: 20180615
  Receipt Date: 20180627
  Transmission Date: 20181010
  Serious: Yes (Other)
  Sender: FDA-Public Use
  Company Number: PHHY2018TH021657

PATIENT
  Age: 75 Year
  Sex: Male

DRUGS (7)
  1. BRIMONIDINE [Suspect]
     Active Substance: BRIMONIDINE TARTRATE
     Indication: OPEN ANGLE GLAUCOMA
     Dosage: UNK
     Route: 047
  2. 5?FLUOROURACIL [Suspect]
     Active Substance: FLUOROURACIL
     Indication: PRODUCT USED FOR UNKNOWN INDICATION
     Dosage: UNK
     Route: 065
     Dates: start: 201410
  3. PREDNISOLONE. [Concomitant]
     Active Substance: PREDNISOLONE
     Indication: PRODUCT USED FOR UNKNOWN INDICATION
     Dosage: UNK UNK, Q2H
     Route: 047
  4. MOXIFLOXACIN. [Suspect]
     Active Substance: MOXIFLOXACIN
     Indication: PRODUCT USED FOR UNKNOWN INDICATION
     Route: 047
  5. TOBRADEX [Suspect]
     Active Substance: DEXAMETHASONE\TOBRAMYCIN
     Indication: PRODUCT USED FOR UNKNOWN INDICATION
     Dosage: UNK UNK, QHS
     Route: 047
  6. TRAVOPROST/TIMOLOL MALEATE A?TTIPQ+EYDR+0.004/0.5 [Suspect]
     Active Substance: TIMOLOL MALEATE\TRAVOPROST
     Indication: OPEN ANGLE GLAUCOMA
     Route: 047
  7. BRINZOLAMIDE [Suspect]
     Active Substance: BRINZOLAMIDE
     Indication: OPEN ANGLE GLAUCOMA
     Dosage: UNK UNK, BID
     Route: 047

REACTIONS (10)
  - Angle closure glaucoma [Unknown]
  - Visual field defect [Unknown]
  - Iris adhesions [Unknown]
  - Fibrosis [Unknown]
  - Intraocular pressure decreased [Unknown]
  - Corneal epithelial microcysts [Unknown]
  - Visual acuity reduced [Unknown]
  - Flat anterior chamber of eye [Unknown]
  - Intraocular pressure increased [Unknown]
  - Optic nerve cup/disc ratio increased [Unknown]
